FAERS Safety Report 19184838 (Version 2)
Quarter: 2021Q2

REPORT INFORMATION
  Report Type: Report from Study
  Country: CN (occurrence: CN)
  Receive Date: 20210427
  Receipt Date: 20210507
  Transmission Date: 20210717
  Serious: Yes (Other)
  Sender: FDA-Public Use
  Company Number: NVSC2021CN084405

PATIENT
  Age: 39 Year
  Sex: Female
  Weight: 55 kg

DRUGS (4)
  1. MYFORTIC [Suspect]
     Active Substance: MYCOPHENOLATE SODIUM
     Dosage: 540 MG, BID
     Route: 048
  2. MYFORTIC [Suspect]
     Active Substance: MYCOPHENOLATE SODIUM
     Indication: REMOVAL OF RENAL TRANSPLANT
     Dosage: 720 MG, BID
     Route: 048
     Dates: start: 20170923
  3. TACROLIMUS. [Suspect]
     Active Substance: TACROLIMUS
     Indication: REMOVAL OF RENAL TRANSPLANT
     Dosage: 4 MG
     Route: 048
     Dates: start: 20170923, end: 20200925
  4. TACROLIMUS. [Suspect]
     Active Substance: TACROLIMUS
     Dosage: 0.25 MG, BID
     Route: 048

REACTIONS (3)
  - Amenorrhoea [Not Recovered/Not Resolved]
  - Menstrual disorder [Not Recovered/Not Resolved]
  - Occult blood positive [Recovering/Resolving]

NARRATIVE: CASE EVENT DATE: 20200205
